FAERS Safety Report 4721706-0 (Version None)
Quarter: 2005Q3

REPORT INFORMATION
  Report Type: 
  Country: None (occurrence: None)
  Receive Date: 20050721
  Receipt Date: 20050304
  Transmission Date: 20060218
  Serious: No
  Sender: FDA-Public Use
  Company Number: US-BRISTOL-MYERS SQUIBB COMPANY-12887584

PATIENT
  Age: 79 Year
  Sex: Male
  Weight: 108 kg

DRUGS (3)
  1. COUMADIN [Suspect]
     Dosage: DOSE REDUCED FROM 2.5 MG DAILY TO 2 MG DAILY BECAUSE OF FLUCTUATING INRS
     Route: 048
  2. TOPROL-XL [Concomitant]
  3. XANAX [Concomitant]

REACTIONS (3)
  - DIVERTICULITIS [None]
  - INTERNATIONAL NORMALISED RATIO FLUCTUATION [None]
  - RECTAL HAEMORRHAGE [None]
